FAERS Safety Report 5953729-8 (Version None)
Quarter: 2008Q4

REPORT INFORMATION
  Report Type: 
  Country: None (occurrence: None)
  Receive Date: 20081114
  Receipt Date: 20081110
  Transmission Date: 20090506
  Serious: Yes (Hospitalization)
  Sender: FDA-Public Use
  Company Number: JP-WYE-H06628208

PATIENT
  Sex: Female

DRUGS (7)
  1. TAZOCIN [Suspect]
     Indication: PNEUMONIA
     Route: 041
     Dates: start: 20081024, end: 20081027
  2. HUSTAZOL [Suspect]
     Indication: INTERSTITIAL LUNG DISEASE
     Route: 048
     Dates: start: 20081024
  3. SPIRIVA [Concomitant]
     Route: 055
  4. LENDORMIN [Concomitant]
     Route: 048
  5. PREDONINE [Concomitant]
     Route: 042
     Dates: start: 20081016
  6. BACTRIM [Suspect]
     Indication: PNEUMOCYSTIS JIROVECI PNEUMONIA
     Dosage: 4.5 TAB DAILY
     Route: 048
  7. FAMOSAN [Concomitant]
     Route: 048

REACTIONS (5)
  - ALANINE AMINOTRANSFERASE INCREASED [None]
  - ASPARTATE AMINOTRANSFERASE INCREASED [None]
  - BLOOD LACTATE DEHYDROGENASE INCREASED [None]
  - GAMMA-GLUTAMYLTRANSFERASE INCREASED [None]
  - LIVER DISORDER [None]
